FAERS Safety Report 9868136 (Version 1)
Quarter: 2014Q1

REPORT INFORMATION
  Report Type: Spontaneous
  Country: IT (occurrence: IT)
  Receive Date: 20140204
  Receipt Date: 20140204
  Transmission Date: 20141002
  Serious: Yes (Other)
  Sender: FDA-Public Use
  Company Number: IT-WATSON-2014-01403

PATIENT
  Age: 30 Year
  Sex: Male

DRUGS (1)
  1. RISPERIDONE ACTAVIS [Suspect]
     Dosage: 4 MG/DIE, DAILY
     Route: 048
     Dates: start: 20131001, end: 20131130

REACTIONS (4)
  - Product substitution issue [Recovering/Resolving]
  - Drug ineffective [Recovering/Resolving]
  - Illusion [Recovering/Resolving]
  - Condition aggravated [Recovering/Resolving]
